FAERS Safety Report 5798135-4 (Version None)
Quarter: 2008Q2

REPORT INFORMATION
  Report Type: 
  Country: None (occurrence: None)
  Receive Date: 20080620
  Receipt Date: 20071017
  Transmission Date: 20081010
  Serious: Yes (Other)
  Sender: FDA-Public Use
  Company Number: 2007-BP-22884RO

PATIENT
  Age: 40 Year
  Sex: Female
  Weight: 104 kg

DRUGS (5)
  1. PREDNISONE [Suspect]
     Indication: MULTIPLE SCLEROSIS
     Dosage: PO
     Route: 048
     Dates: start: 20070501
  2. REBIF [Suspect]
     Indication: MULTIPLE SCLEROSIS
     Dosage: 44 MCG, THREE TIME PER WEEK (3 IN 1 WK),SC
     Route: 058
     Dates: start: 20070622
  3. SOLU-MEDROL [Suspect]
     Indication: MULTIPLE SCLEROSIS
     Dates: start: 20070501
  4. CYTOMEL [Concomitant]
  5. LEVOTHYROXINE SODIUM [Concomitant]

REACTIONS (2)
  - DIABETES MELLITUS [None]
  - HEADACHE [None]
